FAERS Safety Report 5654712-2 (Version None)
Quarter: 2008Q1

REPORT INFORMATION
  Report Type: 
  Country: None (occurrence: None)
  Receive Date: 20080307
  Receipt Date: 20080307
  Transmission Date: 20080703
  Serious: Yes (Hospitalization)
  Sender: FDA-Public Use
  Company Number: None

PATIENT
  Age: 72 Year
  Sex: Male

DRUGS (1)
  1. HEPARIN [Suspect]
     Indication: DIALYSIS
     Dosage: 2000-10,000 UNITS X1 PER HD IV
     Route: 042
     Dates: start: 20080305, end: 20080305

REACTIONS (2)
  - HAEMORRHAGE [None]
  - PROCEDURAL COMPLICATION [None]
